FAERS Safety Report 19370398 (Version 1)
Quarter: 2021Q2

REPORT INFORMATION
  Report Type: Spontaneous
  Country: US (occurrence: US)
  Receive Date: 20210604
  Receipt Date: 20210604
  Transmission Date: 20210717
  Serious: No
  Sender: FDA-Public Use
  Company Number: US-STRIDES ARCOLAB LIMITED-2021SP002641

PATIENT
  Sex: Female

DRUGS (1)
  1. PEG 3350, SODIUM CHLORIDE, SODIUM BICARBONATE, POTASSIUM CHLORIDE [Suspect]
     Active Substance: POLYETHYLENE GLYCOL 3350\POTASSIUM CHLORIDE\SODIUM BICARBONATE\SODIUM CHLORIDE
     Indication: COLONOSCOPY
     Dosage: UNK
     Route: 065

REACTIONS (1)
  - Poor quality product administered [Unknown]
